FAERS Safety Report 13855356 (Version 2)
Quarter: 2017Q4

REPORT INFORMATION
  Report Type: Spontaneous
  Country: FR (occurrence: FR)
  Receive Date: 20170810
  Receipt Date: 20171108
  Transmission Date: 20180320
  Serious: Yes (Hospitalization)
  Sender: FDA-Public Use
  Company Number: FR-FERRINGPH-2017FE03763

PATIENT

DRUGS (22)
  1. KAYEXALATE [Concomitant]
     Active Substance: SODIUM POLYSTYRENE SULFONATE
     Dosage: 2 MEASURING SPOONS PER DAY WITHOUT DIALYSIS
  2. FIRMAGON [Suspect]
     Active Substance: DEGARELIX ACETATE
     Indication: HORMONE-DEPENDENT PROSTATE CANCER
     Dosage: 80 MG, 1 CYCLE
     Route: 042
     Dates: start: 20170727, end: 20170727
  3. MAG 2                              /00454301/ [Concomitant]
     Active Substance: MAGNESIUM CARBONATE
     Dosage: 2 DF, DAILY MORNING
  4. BETOPTIC [Concomitant]
     Active Substance: BETAXOLOL HYDROCHLORIDE
     Dosage: 1 DROP IN THE MORNING AND IN THE EVENING IN EACH EYE
  5. VITAMIN B1 AND B6 [Concomitant]
     Active Substance: PYRIDOXINE HYDROCHLORIDE\THIAMINE HYDROCHLORIDE
     Dosage: 2 DF, DAILY MORNING AND EVENING
  6. KARDEGIC [Concomitant]
     Active Substance: ASPIRIN DL-LYSINE
     Dosage: 1 DF, DAILY
  7. LANTUS [Concomitant]
     Active Substance: INSULIN GLARGINE
     Dosage: DAY WITHOUT DIALYSIS
  8. CALCIDOSE                          /00944201/ [Concomitant]
     Active Substance: CALCIUM CARBONATE\CHOLECALCIFEROL
     Dosage: 4 DF, DAILY 2 DF MORNING, 2 DF LUNCHTIME
  9. COVERSYL                           /00790702/ [Concomitant]
     Active Substance: PERINDOPRIL
     Dosage: 0.5 DF, IN THE EVENING
  10. BISOPROLOL [Concomitant]
     Active Substance: BISOPROLOL
     Dosage: 1 DF, DAILY IN THE MORNING
  11. TAHOR [Concomitant]
     Active Substance: ATORVASTATIN CALCIUM
     Dosage: 1 DF, DAILY IN THE EVENING
  12. XANAX [Concomitant]
     Active Substance: ALPRAZOLAM
     Dosage: 1 DF, DAILY EVENING
  13. ALFUZOSINE                         /00975301/ [Concomitant]
     Dosage: 1 DF, DAILY EVENING
  14. OXAZEPAM. [Concomitant]
     Active Substance: OXAZEPAM
     Dosage: 1 DF, DAILY EVENING
  15. NOVONORM [Concomitant]
     Active Substance: REPAGLINIDE
     Dosage: 1 DF IN THE MORNING AND 2 DF IN THE EVENING
  16. INDOCOLLYRE [Concomitant]
     Active Substance: INDOMETHACIN
     Dosage: 1 DROP IN THE MORNING AND IN THE EVENING IN EACH EYE
  17. SEVELAMER [Concomitant]
     Active Substance: SEVELAMER
     Dosage: 3 DF, DAILY 1 DF MORNING, LUNCHTIME AND EVENING
  18. UVEDOSE [Concomitant]
     Active Substance: CHOLECALCIFEROL
     Dosage: 1 DF, EVERY 2 MONTHS
  19. ZOPICLONE [Concomitant]
     Active Substance: ZOPICLONE
     Dosage: 1 DF, DAILY EVENING
  20. TRUSOPT [Concomitant]
     Active Substance: DORZOLAMIDE HYDROCHLORIDE
     Dosage: 1 DROP IN THE MORNING AND IN THE EVENING IN EACH EYE
  21. IXPRIM [Concomitant]
     Active Substance: ACETAMINOPHEN\TRAMADOL HYDROCHLORIDE
     Dosage: 1 DF IN THE MORNING, AT LUNCHTIME AND IN THE EVENING IF PAIN
  22. PARACETAMOL [Concomitant]
     Active Substance: ACETAMINOPHEN
     Dosage: 1 DF IN THE MORNING, AT LUNCHTIME AND IN THE EVENING IF PAIN

REACTIONS (5)
  - Arteriovenous fistula thrombosis [Recovered/Resolved]
  - Incorrect route of drug administration [Recovered/Resolved]
  - Malaise [Recovered/Resolved]
  - Rash [Recovered/Resolved]
  - Dyspnoea [Recovered/Resolved]

NARRATIVE: CASE EVENT DATE: 20170727
